FAERS Safety Report 6411585-8 (Version None)
Quarter: 2009Q4

REPORT INFORMATION
  Report Type: 
  Country: None (occurrence: None)
  Receive Date: 20091023
  Receipt Date: 20091014
  Transmission Date: 20100525
  Serious: Yes (Hospitalization, Other)
  Sender: FDA-Public Use
  Company Number: US-JNJFOC-20091004677

PATIENT
  Age: 23 Year
  Sex: Male

DRUGS (2)
  1. ULTRAM [Suspect]
     Indication: DRUG USE FOR UNKNOWN INDICATION
     Route: 065
  2. VICODIN ES [Suspect]
     Indication: DRUG USE FOR UNKNOWN INDICATION
     Route: 065

REACTIONS (7)
  - CONVULSION [None]
  - FOAMING AT MOUTH [None]
  - HYPERTENSION [None]
  - MYDRIASIS [None]
  - OVERDOSE [None]
  - TACHYCARDIA [None]
  - UNRESPONSIVE TO STIMULI [None]
